FAERS Safety Report 5607370-7 (Version None)
Quarter: 2008Q1

REPORT INFORMATION
  Report Type: 
  Country: None (occurrence: None)
  Receive Date: 20080130
  Receipt Date: 20080118
  Transmission Date: 20080703
  Serious: Yes (Death, Other)
  Sender: FDA-Public Use
  Company Number: FR-ELI_LILLY_AND_COMPANY-FR200801004073

PATIENT
  Age: 68 Year
  Sex: Male

DRUGS (3)
  1. GEMCITABINE HCL [Suspect]
     Indication: ADENOCARCINOMA PANCREAS
     Dosage: 1000 MG/M2, WEEKLY (1/W)
     Route: 042
     Dates: start: 20021001, end: 20021201
  2. GEMCITABINE HCL [Suspect]
     Route: 042
     Dates: end: 20030301
  3. GEMCITABINE HCL [Suspect]
     Route: 042
     Dates: end: 20030701

REACTIONS (5)
  - CAPILLARY LEAK SYNDROME [None]
  - GENERALISED OEDEMA [None]
  - MALIGNANT NEOPLASM PROGRESSION [None]
  - NEUTROPENIA [None]
  - RENAL FAILURE [None]
